FAERS Safety Report 8211647-9 (Version None)
Quarter: 2012Q1

REPORT INFORMATION
  Report Type: 
  Country: None (occurrence: None)
  Receive Date: 20120315
  Receipt Date: 20120307
  Transmission Date: 20120608
  Serious: Yes (Hospitalization)
  Sender: FDA-Public Use
  Company Number: JP-PFIZER INC-2012061371

PATIENT
  Age: 37 Year
  Sex: Female

DRUGS (2)
  1. MEDROXYPROGESTERONE ACETATE [Suspect]
     Indication: ENDOMETRIAL HYPERPLASIA
  2. MEDROXYPROGESTERONE ACETATE [Suspect]
     Indication: OFF LABEL USE

REACTIONS (3)
  - ADENOMYOSIS [None]
  - CONDITION AGGRAVATED [None]
  - UTERINE POLYP [None]
